FAERS Safety Report 14474632 (Version 6)
Quarter: 2018Q3

REPORT INFORMATION
  Report Type: Spontaneous
  Country: IT (occurrence: IT)
  Receive Date: 20180201
  Receipt Date: 20180724
  Transmission Date: 20181010
  Serious: Yes (Life-Threatening, Hospitalization, Other)
  Sender: FDA-Public Use
  Company Number: PHHY2018IT012484

PATIENT
  Age: 44 Year
  Sex: Male

DRUGS (9)
  1. CLARITHROMYCIN. [Suspect]
     Active Substance: CLARITHROMYCIN
     Indication: LUNG CONSOLIDATION
     Dosage: 1 G, QD
     Route: 048
  2. LEVOFLOXACIN. [Suspect]
     Active Substance: LEVOFLOXACIN
     Dosage: 1500 MG, QD
     Route: 042
  3. FLUCONAZOLE. [Concomitant]
     Active Substance: FLUCONAZOLE
     Indication: PNEUMONIA LEGIONELLA
     Dosage: 800 MG, QD
     Route: 042
  4. LEVOFLOXACIN. [Suspect]
     Active Substance: LEVOFLOXACIN
     Indication: PNEUMONIA LEGIONELLA
     Dosage: 750 MG, QD
     Route: 042
  5. PIPERACILLIN AND TAZOBACTAM [Suspect]
     Active Substance: PIPERACILLIN SODIUM\TAZOBACTAM SODIUM
     Indication: PROPHYLAXIS
     Dosage: 13.5 G, QD
     Route: 042
  6. RIFAMPICIN [Suspect]
     Active Substance: RIFAMPIN
     Indication: PNEUMONIA LEGIONELLA
     Route: 065
  7. AMOXICILLIN, CLAVULANIC ACID [Suspect]
     Active Substance: AMOXICILLIN\CLAVULANIC ACID
     Indication: HEADACHE
     Route: 048
  8. AMOXICILLIN, CLAVULANIC ACID [Suspect]
     Active Substance: AMOXICILLIN\CLAVULANIC ACID
     Indication: HYPERPYREXIA
  9. AMOXICILLIN, CLAVULANIC ACID [Suspect]
     Active Substance: AMOXICILLIN\CLAVULANIC ACID
     Indication: ASTHENIA

REACTIONS (20)
  - CD4/CD8 ratio decreased [Recovered/Resolved]
  - Eosinophil count increased [Recovered/Resolved]
  - Acute respiratory distress syndrome [Recovered/Resolved]
  - Pneumothorax [Recovered/Resolved]
  - Respiratory distress [Recovered/Resolved]
  - Blood pH increased [Recovered/Resolved]
  - Lymphocyte count decreased [Recovered/Resolved]
  - PCO2 decreased [Recovered/Resolved]
  - Eosinophilic pneumonia acute [Recovered/Resolved]
  - Pleural effusion [Recovered/Resolved]
  - Pneumonia legionella [Recovered/Resolved]
  - Muscle fatigue [Recovered/Resolved]
  - Oxygen saturation decreased [Recovered/Resolved]
  - Neutrophil count decreased [Recovered/Resolved]
  - PO2 decreased [Recovered/Resolved]
  - Drug ineffective [Unknown]
  - Treatment failure [Unknown]
  - Lung consolidation [Recovered/Resolved]
  - Pulmonary eosinophilia [Recovered/Resolved]
  - Eosinophilia [Recovered/Resolved]
